FAERS Safety Report 17570421 (Version 1)
Quarter: 2020Q1

REPORT INFORMATION
  Report Type: Spontaneous
  Country: US (occurrence: US)
  Receive Date: 20200316
  Receipt Date: 20200316
  Transmission Date: 20200409
  Serious: Yes (Hospitalization)
  Sender: FDA-Public Use
  Company Number: None

PATIENT
  Age: 27 Year
  Sex: Female

DRUGS (1)
  1. EPOPROSTENOL SODIUM 0.5MG TEVA PARENTERAL MEDICINES [Suspect]
     Active Substance: EPOPROSTENOL SODIUM
     Indication: PULMONARY ARTERIAL HYPERTENSION
     Dosage: ?          OTHER DOSE:2 NG/KG/MIN;OTHER FREQUENCY:CONTINUOUS;?
     Route: 042
     Dates: start: 20190710

REACTIONS (1)
  - Chest pain [None]

NARRATIVE: CASE EVENT DATE: 20200305
